FAERS Safety Report 6479642-8 (Version None)
Quarter: 2009Q4

REPORT INFORMATION
  Report Type: 
  Country: None (occurrence: None)
  Receive Date: 20091204
  Receipt Date: 20091204
  Transmission Date: 20100525
  Serious: Yes (Death, Life-Threatening, Hospitalization)
  Sender: FDA-Public Use
  Company Number: None

PATIENT
  Age: 44 Year
  Sex: Female
  Weight: 55.5656 kg

DRUGS (9)
  1. PANITUMUMAB [Suspect]
     Indication: COLON CANCER METASTATIC
     Dosage: 6MG/KG Q14 DAY IV BOLUS
     Route: 040
     Dates: start: 20090608
  2. ATIVAN [Concomitant]
  3. COMPAZINE [Concomitant]
  4. DECADRON [Concomitant]
  5. ZYPREXA [Concomitant]
  6. ZOFRAN [Concomitant]
  7. POTASSIUM CHLORIDE TAB [Concomitant]
  8. OXYCONTIN [Concomitant]
  9. OXYCODONE [Concomitant]

REACTIONS (11)
  - ABDOMINAL PAIN [None]
  - BACK PAIN [None]
  - BLOOD BILIRUBIN INCREASED [None]
  - COLORECTAL CANCER [None]
  - CONFUSIONAL STATE [None]
  - GENERAL PHYSICAL HEALTH DETERIORATION [None]
  - HEADACHE [None]
  - HYPOPHAGIA [None]
  - JAUNDICE [None]
  - MALIGNANT NEOPLASM PROGRESSION [None]
  - MUSCULOSKELETAL PAIN [None]
